FAERS Safety Report 6093688-3 (Version None)
Quarter: 2009Q1

REPORT INFORMATION
  Report Type: 
  Country: None (occurrence: None)
  Receive Date: 20090226
  Receipt Date: 20090216
  Transmission Date: 20090719
  Serious: Yes (Hospitalization)
  Sender: FDA-Public Use
  Company Number: KP-WATSON-2009-01169

PATIENT
  Age: 78 Year
  Sex: Female

DRUGS (1)
  1. CEFAZOLIN SODIUM                   09 [Suspect]
     Indication: SPINAL COLUMN STENOSIS
     Dosage: 1 G, SINGLE
     Route: 008
     Dates: start: 20080101

REACTIONS (1)
  - STATUS EPILEPTICUS [None]
